FAERS Safety Report 5231267-8 (Version None)
Quarter: 2007Q1

REPORT INFORMATION
  Report Type: 
  Country: None (occurrence: None)
  Receive Date: 20070205
  Receipt Date: 20070205
  Transmission Date: 20070707
  Serious: Yes (Hospitalization)
  Sender: FDA-Public Use
  Company Number: None

PATIENT
  Sex: Female
  Weight: 80.2867 kg

DRUGS (2)
  1. CLOZAPINE [Suspect]
     Dosage: 25 MG TWO DAILY PO
     Route: 048
     Dates: start: 20070105, end: 20070125
  2. ORTHO EVRA [Suspect]
     Indication: CONTRACEPTION
     Dosage: 1 PATCH WEEKLY
     Dates: end: 20070125

REACTIONS (1)
  - THROMBOSIS [None]
